FAERS Safety Report 9019096 (Version 1)
Quarter: 2013Q1

REPORT INFORMATION
  Report Type: Spontaneous
  Country: US (occurrence: US)
  Receive Date: 20130118
  Receipt Date: 20130118
  Transmission Date: 20140127
  Serious: No
  Sender: FDA-Public Use
  Company Number: US-PFIZER INC-2013021310

PATIENT
  Sex: Female

DRUGS (2)
  1. ADVIL PM [Suspect]
     Indication: PAIN
     Dosage: UNK
     Route: 048
  2. ADVIL PM [Suspect]
     Dosage: 3 CAPLETS AT A TIME
     Route: 048

REACTIONS (3)
  - Incorrect dose administered [Unknown]
  - Dyspepsia [Unknown]
  - Back pain [Unknown]
